FAERS Safety Report 8928756 (Version 1)
Quarter: 2012Q4

REPORT INFORMATION
  Report Type: Spontaneous
  Country: US (occurrence: None)
  Receive Date: 20121126
  Receipt Date: 20121126
  Transmission Date: 20130627
  Serious: Yes (Other)
  Sender: FDA-Public Use
  Company Number: None

PATIENT
  Age: 92 Year
  Sex: Female
  Weight: 70.31 kg

DRUGS (2)
  1. PROLIA [Concomitant]
     Indication: OSTEOPOROSIS
     Dates: start: 20121114, end: 20121114
  2. PROLIA [Concomitant]

REACTIONS (4)
  - Pain in extremity [None]
  - Pain in extremity [None]
  - Hypoaesthesia [None]
  - Hypoaesthesia [None]
